FAERS Safety Report 14907805 (Version 1)
Quarter: 2018Q2

REPORT INFORMATION
  Report Type: Report from Study
  Country: US (occurrence: US)
  Receive Date: 20180517
  Receipt Date: 20180517
  Transmission Date: 20180711
  Serious: Yes (Hospitalization)
  Sender: FDA-Public Use
  Company Number: PHEH2018US017586

PATIENT
  Sex: Male

DRUGS (1)
  1. COSENTYX [Suspect]
     Active Substance: SECUKINUMAB
     Indication: PRODUCT USED FOR UNKNOWN INDICATION
     Route: 058

REACTIONS (11)
  - Joint dislocation [Unknown]
  - Hypersensitivity [Unknown]
  - Dehydration [Unknown]
  - Psoriatic arthropathy [Unknown]
  - Chondrocalcinosis pyrophosphate [Unknown]
  - Peripheral swelling [Unknown]
  - Osteoporosis [Unknown]
  - Decreased immune responsiveness [Unknown]
  - Pain [Unknown]
  - Bone disorder [Unknown]
  - Urticaria [Unknown]
